FAERS Safety Report 20757698 (Version 1)
Quarter: 2022Q2

REPORT INFORMATION
  Report Type: Spontaneous
  Country: US (occurrence: None)
  Receive Date: 20220427
  Receipt Date: 20220427
  Transmission Date: 20220720
  Serious: Yes (Disabling, Other)
  Sender: FDA-Public Use
  Company Number: None

PATIENT
  Age: 59 Year
  Sex: Female
  Weight: 89.81 kg

DRUGS (10)
  1. DEVICE [Suspect]
     Active Substance: DEVICE
     Indication: Infection
     Dosage: OTHER QUANTITY : 5 DROPS;?FREQUENCY : DAILY;?OTHER ROUTE : INTO THE EYE;?
     Route: 050
  2. DEVICE [Suspect]
     Active Substance: DEVICE
     Indication: Keratitis
  3. MURO 128 [Suspect]
     Active Substance: SODIUM CHLORIDE
     Indication: Keratitis
  4. TRIANTERINE [Concomitant]
  5. LACTULOSE [Concomitant]
     Active Substance: LACTULOSE
  6. ESTRADIOL [Concomitant]
     Active Substance: ESTRADIOL
  7. LEVOTHYROXINE [Concomitant]
     Active Substance: LEVOTHYROXINE
  8. MORPHINE [Concomitant]
     Active Substance: MORPHINE
  9. OXYCODONE [Concomitant]
     Active Substance: OXYCODONE
  10. VITAMIN C [Concomitant]
     Active Substance: ASCORBIC ACID

REACTIONS (8)
  - Wrong device used [None]
  - Keratitis [None]
  - Vision blurred [None]
  - Implant site pain [None]
  - Ocular hyperaemia [None]
  - Post procedural complication [None]
  - Halo vision [None]
  - Disability [None]

NARRATIVE: CASE EVENT DATE: 20200604
